FAERS Safety Report 8959356 (Version 4)
Quarter: 2013Q1

REPORT INFORMATION
  Report Type: Spontaneous
  Country: AU (occurrence: AU)
  Receive Date: 20121212
  Receipt Date: 20130204
  Transmission Date: 20140127
  Serious: Yes (Death, Hospitalization, Other)
  Sender: FDA-Public Use
  Company Number: AU-ABBOTT-12P-008-1019671-00

PATIENT
  Age: 72 Year
  Sex: Male

DRUGS (6)
  1. HUMIRA [Suspect]
     Indication: PYODERMA GANGRENOSUM
     Dosage: STARTED LATE SEPT 2012
     Dates: start: 201209
  2. PREDNISOLONE [Suspect]
     Indication: PRODUCT USED FOR UNKNOWN INDICATION
  3. PREDNISOLONE [Suspect]
     Dosage: UP TO 60 MG DAILY
  4. MYCOPHENOLATE [Suspect]
     Indication: PRODUCT USED FOR UNKNOWN INDICATION
  5. IVIG [Concomitant]
  6. INFLIXIMAB [Concomitant]
     Indication: PYODERMA GANGRENOSUM

REACTIONS (4)
  - Acute respiratory failure [Fatal]
  - Supraventricular tachycardia [Fatal]
  - Pyoderma gangrenosum [Fatal]
  - Condition aggravated [Unknown]
